FAERS Safety Report 9432250 (Version 4)
Quarter: 2014Q1

REPORT INFORMATION
  Report Type: Report from Study
  Country: LT (occurrence: LT)
  Receive Date: 20130731
  Receipt Date: 20140312
  Transmission Date: 20141002
  Serious: Yes (Other)
  Sender: FDA-Public Use
  Company Number: PHHY2013LT064431

PATIENT
  Age: 40 Year
  Sex: Female

DRUGS (2)
  1. FTY 720 [Suspect]
     Indication: MULTIPLE SCLEROSIS
     Dosage: UNK
     Route: 048
     Dates: start: 20120502, end: 20130607
  2. FTY 720 [Suspect]
     Dosage: UNK
     Route: 048
     Dates: start: 20130614, end: 20130714

REACTIONS (4)
  - Asthma [Recovering/Resolving]
  - Cough [Unknown]
  - Dyspnoea [Recovered/Resolved]
  - Pyrexia [Unknown]
